FAERS Safety Report 4909113-9 (Version None)
Quarter: 2006Q1

REPORT INFORMATION
  Report Type: 
  Country: None (occurrence: None)
  Receive Date: 20060210
  Receipt Date: 20060210
  Transmission Date: 20060701
  Serious: No
  Sender: FDA-Public Use
  Company Number: None

PATIENT
  Age: 50 Year
  Sex: Female
  Weight: 96.1626 kg

DRUGS (5)
  1. AVELOX [Suspect]
     Indication: DISEASE RECURRENCE
     Dosage: 400 MG ONCE DAILY ORALLY
     Route: 048
     Dates: start: 20060117, end: 20060125
  2. AVELOX [Suspect]
     Indication: OTITIS MEDIA
     Dosage: 400 MG ONCE DAILY ORALLY
     Route: 048
     Dates: start: 20060117, end: 20060125
  3. ADVAIR INHALER [Concomitant]
  4. SINGULAIR [Concomitant]
  5. ALLEGRA [Concomitant]

REACTIONS (3)
  - NAUSEA [None]
  - TINNITUS [None]
  - VOMITING [None]
